FAERS Safety Report 23327057 (Version 1)
Quarter: 2023Q4

REPORT INFORMATION
  Report Type: Spontaneous
  Country: IT (occurrence: None)
  Receive Date: 20231221
  Receipt Date: 20231221
  Transmission Date: 20240110
  Serious: Yes (Other)
  Sender: FDA-Public Use
  Company Number: 2023A285936

PATIENT
  Age: 28828 Day
  Sex: Male

DRUGS (1)
  1. FASENRA [Suspect]
     Active Substance: BENRALIZUMAB
     Indication: Asthma
     Route: 058
     Dates: start: 202109

REACTIONS (1)
  - Cardiac amyloidosis [Not Recovered/Not Resolved]

NARRATIVE: CASE EVENT DATE: 20230901
